FAERS Safety Report 9842041 (Version 1)
Quarter: 2013Q4

REPORT INFORMATION
  Report Type: Spontaneous
  Country: US (occurrence: None)
  Receive Date: 20131219
  Receipt Date: 20131219
  Transmission Date: 20140711
  Serious: Yes (Death)
  Sender: FDA-Public Use
  Company Number: 163-20785-13011227

PATIENT
  Age: 56 Year
  Sex: Female

DRUGS (1)
  1. THALOMID (THALIDOMIDE) (100 MILLIGRAM, CAPSULES) [Suspect]
     Indication: LEPROSY
     Dosage: 100 MG, 1 IN 1 D, PO
     Route: 048
     Dates: start: 200903

REACTIONS (1)
  - Death [None]
